FAERS Safety Report 11728745 (Version 1)
Quarter: 2015Q4

REPORT INFORMATION
  Report Type: Spontaneous
  Country: US (occurrence: US)
  Receive Date: 20151110
  Receipt Date: 20151110
  Transmission Date: 20160304
  Serious: No
  Sender: FDA-Public Use
  Company Number: US-ELI_LILLY_AND_COMPANY-US201112002660

PATIENT
  Age: 85 Year
  Sex: Female
  Weight: 68.04 kg

DRUGS (3)
  1. FORTEO [Suspect]
     Active Substance: TERIPARATIDE
     Indication: OSTEOPOROSIS
     Dosage: UNK
  2. ADVAIR HFA [Concomitant]
     Active Substance: FLUTICASONE PROPIONATE\SALMETEROL XINAFOATE
  3. ALBUTEROL SULFATE AND IPRATROPIUM BROMIDE [Concomitant]
     Indication: BRONCHOSPASM
     Dosage: 3.5 MG, UNK
     Route: 055
     Dates: start: 200910, end: 201109

REACTIONS (3)
  - Tooth loss [Unknown]
  - Dental caries [Unknown]
  - Alopecia [Unknown]

NARRATIVE: CASE EVENT DATE: 20111027
